FAERS Safety Report 5856075-6 (Version None)
Quarter: 2008Q3

REPORT INFORMATION
  Report Type: 
  Country: None (occurrence: None)
  Receive Date: 20080825
  Receipt Date: 20080813
  Transmission Date: 20090109
  Serious: Yes (Other)
  Sender: FDA-Public Use
  Company Number: NL-AMGEN-UK301350

PATIENT

DRUGS (1)
  1. NEUPOGEN [Suspect]
     Indication: PRE-EXISTING DISEASE

REACTIONS (4)
  - FLUID RETENTION [None]
  - INJECTION SITE PAIN [None]
  - MALAISE [None]
  - PYREXIA [None]
